FAERS Safety Report 20325638 (Version 1)
Quarter: 2022Q1

REPORT INFORMATION
  Report Type: Spontaneous
  Country: FR (occurrence: FR)
  Receive Date: 20220112
  Receipt Date: 20220112
  Transmission Date: 20220423
  Serious: Yes (Hospitalization)
  Sender: FDA-Public Use
  Company Number: None

PATIENT
  Age: 57 Year
  Sex: Male
  Weight: 90 kg

DRUGS (2)
  1. EZETIMIBE\SIMVASTATIN [Suspect]
     Active Substance: EZETIMIBE\SIMVASTATIN
     Indication: Dyslipidaemia
     Dosage: 1 DOSAGE FORM, QD
     Route: 048
  2. COMIRNATY [Suspect]
     Active Substance: TOZINAMERAN
     Indication: COVID-19 immunisation
     Dosage: D2. CONCENTRATE FOR INJECTION. COVID-19 MRNA VACCINE (MODIFIED NUCLEOSIDE), MRNA ENCODING THE PEAK V
     Route: 030
     Dates: start: 20210707, end: 20210707

REACTIONS (1)
  - Pulmonary embolism [Recovering/Resolving]

NARRATIVE: CASE EVENT DATE: 20211105
